FAERS Safety Report 8548729-8 (Version None)
Quarter: 2012Q3

REPORT INFORMATION
  Report Type: 
  Country: None (occurrence: None)
  Receive Date: 20120720
  Receipt Date: 20120720
  Transmission Date: 20120928
  Serious: Yes (Hospitalization)
  Sender: FDA-Public Use
  Company Number: None

PATIENT
  Age: 4 Year
  Sex: Female
  Weight: 14 kg

DRUGS (10)
  1. ERGOCALCIFEROL [Concomitant]
  2. AMLODIPINE [Concomitant]
  3. ENALAPRIL MALEATE [Concomitant]
  4. CALCIUM CARBONATE [Concomitant]
  5. BACTRIM [Concomitant]
  6. BACTRIM [Suspect]
  7. FLUCONAZOLE [Concomitant]
  8. VALGANCICLOVIR [Concomitant]
  9. LANSOPRAZOLE [Concomitant]
  10. HYDROCHLOROTHIAZIDE [Concomitant]

REACTIONS (2)
  - RASH [None]
  - PYREXIA [None]
